FAERS Safety Report 22652466 (Version 3)
Quarter: 2025Q2

REPORT INFORMATION
  Report Type: Report from Study
  Country: US (occurrence: US)
  Receive Date: 20230629
  Receipt Date: 20250421
  Transmission Date: 20250716
  Serious: Yes (Hospitalization)
  Sender: TAKEDA
  Company Number: US-TAKEDA-US202008116

PATIENT
  Sex: Female

DRUGS (2)
  1. HUMAN IMMUNOGLOBULIN G [Suspect]
     Active Substance: HUMAN IMMUNOGLOBULIN G
     Indication: Immunodeficiency common variable
  2. HUMAN IMMUNOGLOBULIN G [Suspect]
     Active Substance: HUMAN IMMUNOGLOBULIN G
     Indication: Primary immunodeficiency syndrome

REACTIONS (9)
  - COVID-19 [Unknown]
  - Therapeutic response shortened [Unknown]
  - Weight decreased [Unknown]
  - Malaise [Unknown]
  - Nasopharyngitis [Unknown]
  - Antibody test abnormal [Unknown]
  - Joint injury [Unknown]
  - Fall [Unknown]
  - Headache [Unknown]
